FAERS Safety Report 8231905-1 (Version None)
Quarter: 2012Q1

REPORT INFORMATION
  Report Type: 
  Country: None (occurrence: None)
  Receive Date: 20120323
  Receipt Date: 20120319
  Transmission Date: 20120608
  Serious: Yes (Death)
  Sender: FDA-Public Use
  Company Number: DE-JNJFOC-20120100355

PATIENT
  Sex: Male
  Weight: 95 kg

DRUGS (7)
  1. RISPERDAL [Suspect]
     Indication: PRODUCT USED FOR UNKNOWN INDICATION
     Route: 048
     Dates: start: 20111207, end: 20111223
  2. PALIPERIDONE PALMITATE [Suspect]
     Route: 030
     Dates: start: 20110929
  3. RISPERDAL [Suspect]
     Route: 048
     Dates: start: 20111125, end: 20111206
  4. LORAZEPAM [Concomitant]
     Route: 065
  5. VALERIAN [Concomitant]
     Route: 065
  6. PALIPERIDONE PALMITATE [Suspect]
     Indication: PRODUCT USED FOR UNKNOWN INDICATION
     Route: 030
     Dates: start: 20111220
  7. AKINETON [Concomitant]
     Indication: HYPOKINESIA
     Route: 065

REACTIONS (6)
  - PARANOIA [None]
  - MYOCARDIAL INFARCTION [None]
  - SLEEP DISORDER [None]
  - RESTLESSNESS [None]
  - ANXIETY [None]
  - COMPULSIONS [None]
